FAERS Safety Report 11964894 (Version 1)
Quarter: 2016Q1

REPORT INFORMATION
  Report Type: Report from Study
  Country: CA (occurrence: CA)
  Receive Date: 20160127
  Receipt Date: 20160127
  Transmission Date: 20160526
  Serious: Yes (Other)
  Sender: FDA-Public Use
  Company Number: CA-BEH-2016057637

PATIENT
  Age: 38 Year
  Sex: Female
  Weight: 55.5 kg

DRUGS (3)
  1. HIZENTRA [Suspect]
     Active Substance: HUMAN IMMUNOGLOBULIN G
     Indication: IMMUNODEFICIENCY COMMON VARIABLE
     Dosage: PUSH METHOD
     Route: 058
     Dates: start: 20150928
  2. HIZENTRA [Suspect]
     Active Substance: HUMAN IMMUNOGLOBULIN G
     Indication: IMMUNODEFICIENCY
     Dosage: PUSH METHOD
     Route: 058
     Dates: start: 20150928
  3. HIZENTRA [Suspect]
     Active Substance: HUMAN IMMUNOGLOBULIN G
     Indication: IMMUNODEFICIENCY
     Dosage: PUSH METHOD
     Route: 058
     Dates: start: 20150928

REACTIONS (4)
  - Cough [Not Recovered/Not Resolved]
  - Dehydration [Recovered/Resolved]
  - Treatment noncompliance [Unknown]
  - Influenza [Recovered/Resolved]

NARRATIVE: CASE EVENT DATE: 201511
